FAERS Safety Report 9036124 (Version 1)
Quarter: 2013Q1

REPORT INFORMATION
  Report Type: Report from Study
  Country: US (occurrence: US)
  Receive Date: 20130129
  Receipt Date: 20130129
  Transmission Date: 20140127
  Serious: No
  Sender: FDA-Public Use
  Company Number: US-ABBOTT-12P-163-0917708-00

PATIENT
  Sex: Female
  Weight: 68.1 kg

DRUGS (19)
  1. HUMIRA 40 MG/0.8 ML PEN [Suspect]
     Indication: RHEUMATOID ARTHRITIS
     Dates: start: 20100920
  2. ARAVA [Concomitant]
     Indication: RHEUMATOID ARTHRITIS
  3. PREDNISONE [Concomitant]
     Indication: RHEUMATOID ARTHRITIS
  4. COUMADIN [Concomitant]
     Indication: FACTOR V DEFICIENCY
     Dosage: VARY 2 MG 6 DAYS A WK 1 MG ONCE A WK
  5. CARDIZEM CD [Concomitant]
     Indication: RAYNAUD^S PHENOMENON
  6. PEPCID [Concomitant]
     Indication: PRODUCT USED FOR UNKNOWN INDICATION
  7. ZOCOR [Concomitant]
     Indication: BLOOD CHOLESTEROL
  8. POTASSIUM CHLORIDE ER [Concomitant]
     Indication: MINERAL SUPPLEMENTATION
  9. MAG OXIDE [Concomitant]
     Indication: PRODUCT USED FOR UNKNOWN INDICATION
  10. SPIRIVA [Concomitant]
     Indication: EMPHYSEMA
  11. XOPENEX [Concomitant]
     Indication: EMPHYSEMA
  12. LASIX [Concomitant]
     Indication: OEDEMA PERIPHERAL
  13. FOLIC ACID [Concomitant]
     Indication: PRODUCT USED FOR UNKNOWN INDICATION
  14. LISINOPRIL [Concomitant]
     Indication: HYPERTENSION
  15. CALTRATE WITH VITAMIN D [Concomitant]
     Indication: VITAMIN SUPPLEMENTATION
  16. VIT D [Concomitant]
     Indication: VITAMIN D DECREASED
  17. B COMPLEX [Concomitant]
     Indication: VITAMIN SUPPLEMENTATION
  18. MVI [Concomitant]
     Indication: VITAMIN SUPPLEMENTATION
  19. RESTASIS EYE [Concomitant]
     Indication: DRY EYE

REACTIONS (7)
  - Arthritis [Recovered/Resolved]
  - Pneumonia [Recovered/Resolved]
  - Pharyngitis streptococcal [Recovered/Resolved]
  - Loose tooth [Recovered/Resolved]
  - Cough [Recovered/Resolved]
  - Pigmentation disorder [Not Recovered/Not Resolved]
  - Stress fracture [Recovering/Resolving]
